FAERS Safety Report 9179937 (Version 2)
Quarter: 2015Q2

REPORT INFORMATION
  Report Type: Report from Study
  Country: DE (occurrence: DE)
  Receive Date: 20121029
  Receipt Date: 20150522
  Transmission Date: 20150821
  Serious: Yes (Other)
  Sender: FDA-Public Use
  Company Number: PHHY2012DE089181

PATIENT
  Age: 36 Year
  Sex: Male
  Weight: 105 kg

DRUGS (3)
  1. METOCLOPRAMIDE. [Concomitant]
     Active Substance: METOCLOPRAMIDE
     Indication: GASTROOESOPHAGEAL REFLUX DISEASE
     Dosage: 3 DF, QD  (3X30 DROPS/DAY IF NEEDED)
     Route: 048
     Dates: start: 2007
  2. EXTAVIA [Suspect]
     Active Substance: INTERFERON BETA-1B
     Indication: MULTIPLE SCLEROSIS
     Dosage: 1 DF, QOD
     Route: 058
     Dates: start: 20091103
  3. RIFUN [Concomitant]
     Active Substance: PANTOPRAZOLE SODIUM
     Indication: GASTROOESOPHAGEAL REFLUX DISEASE
     Dosage: 40 MG PER DAY IF NEEDED
     Route: 048
     Dates: start: 2007

REACTIONS (3)
  - Musculoskeletal pain [Recovering/Resolving]
  - Wrong technique in drug usage process [Unknown]
  - Injection site abscess [Recovering/Resolving]

NARRATIVE: CASE EVENT DATE: 20121007
